FAERS Safety Report 9236871 (Version 2)
Quarter: 2013Q2

REPORT INFORMATION
  Report Type: Spontaneous
  Country: BR (occurrence: BR)
  Receive Date: 20130417
  Receipt Date: 20130531
  Transmission Date: 20140414
  Serious: Yes (Hospitalization)
  Sender: FDA-Public Use
  Company Number: BR-ASTRAZENECA-2013SE23619

PATIENT
  Age: 40 Year
  Sex: Female
  Weight: 67 kg

DRUGS (17)
  1. ATENOLOL [Suspect]
     Indication: HYPERTENSION
     Route: 048
     Dates: start: 2011, end: 201302
  2. ATENOLOL [Suspect]
     Indication: TACHYCARDIA
     Route: 048
     Dates: start: 2011, end: 201302
  3. ATENOLOL [Suspect]
     Indication: HYPERTENSION
     Route: 048
     Dates: start: 201302, end: 201302
  4. ATENOLOL [Suspect]
     Indication: TACHYCARDIA
     Route: 048
     Dates: start: 201302, end: 201302
  5. ATENOLOL [Suspect]
     Indication: HYPERTENSION
     Route: 048
     Dates: start: 201302, end: 201304
  6. ATENOLOL [Suspect]
     Indication: TACHYCARDIA
     Route: 048
     Dates: start: 201302, end: 201304
  7. SELOZOK [Suspect]
     Indication: TACHYCARDIA
     Route: 048
     Dates: start: 20130418
  8. SELOZOK [Suspect]
     Indication: TACHYCARDIA
     Route: 048
  9. SELOZOK [Suspect]
     Indication: TACHYCARDIA
     Route: 048
     Dates: end: 20130418
  10. OMEPRAZOLE [Suspect]
     Indication: DYSPEPSIA
     Dosage: AS REQUIRED
     Route: 048
     Dates: start: 1993
  11. RANITIDINE [Suspect]
     Indication: DYSPEPSIA
     Dosage: AS REQUIRED
     Route: 065
     Dates: start: 1993, end: 2013
  12. ALOPURINOL [Concomitant]
     Indication: BLOOD URIC ACID INCREASED
     Dates: start: 1993
  13. HYDREA [Concomitant]
     Indication: MYELOFIBROSIS
     Dates: start: 1993
  14. D VITAMIN [Concomitant]
     Indication: OSTEOPOROSIS PROPHYLAXIS
  15. D VITAMIN [Concomitant]
     Indication: OSTEOPENIA
  16. ALENDRONATE SODIUM [Concomitant]
     Indication: OSTEOPOROSIS PROPHYLAXIS
  17. ALENDRONATE SODIUM [Concomitant]
     Indication: OSTEOPENIA

REACTIONS (17)
  - Haemoglobin decreased [Recovered/Resolved]
  - Blood pressure increased [Not Recovered/Not Resolved]
  - Weight increased [Not Recovered/Not Resolved]
  - Disturbance in attention [Not Recovered/Not Resolved]
  - Nervousness [Not Recovered/Not Resolved]
  - Insomnia [Recovering/Resolving]
  - Psychiatric symptom [Not Recovered/Not Resolved]
  - Alopecia [Not Recovered/Not Resolved]
  - Fatigue [Not Recovered/Not Resolved]
  - Bradycardia [Not Recovered/Not Resolved]
  - Gastrointestinal disorder [Not Recovered/Not Resolved]
  - Headache [Not Recovered/Not Resolved]
  - Diarrhoea [Not Recovered/Not Resolved]
  - Hypoaesthesia [Not Recovered/Not Resolved]
  - Somnolence [Not Recovered/Not Resolved]
  - Visual impairment [Not Recovered/Not Resolved]
  - Off label use [Unknown]
